FAERS Safety Report 8070869 (Version 2)
Quarter: 2013Q3

REPORT INFORMATION
  Report Type: Spontaneous
  Country: FR (occurrence: FR)
  Receive Date: 20110805
  Receipt Date: 20130909
  Transmission Date: 20140515
  Serious: Yes (Hospitalization)
  Sender: FDA-Public Use
  Company Number: FR-PFIZER INC-2011175749

PATIENT
  Age: 64 Year
  Sex: Male

DRUGS (6)
  1. TAZOCILLINE [Suspect]
     Indication: INFECTION
     Dosage: UNK
     Dates: start: 20110531, end: 20110601
  2. CIFLOX [Suspect]
     Indication: PNEUMONIA
     Dosage: UNK
     Dates: start: 20110510, end: 20110514
  3. CIFLOX [Suspect]
     Indication: SEPTIC SHOCK
  4. PIPERACILLIN [Suspect]
     Indication: INFECTION
     Dosage: UNK
     Dates: start: 20110601, end: 20110608
  5. AMIKLIN [Suspect]
     Indication: INFECTION
     Dosage: UNK
     Dates: start: 20110531, end: 20110602
  6. FLUCONAZOLE [Suspect]
     Indication: INFECTION
     Dosage: UNK
     Dates: start: 20110601, end: 20110615

REACTIONS (1)
  - Toxic skin eruption [Recovered/Resolved]
